FAERS Safety Report 7518492-8 (Version None)
Quarter: 2011Q2

REPORT INFORMATION
  Report Type: 
  Country: None (occurrence: None)
  Receive Date: 20110601
  Receipt Date: 20110601
  Transmission Date: 20111010
  Serious: Yes (Other)
  Sender: FDA-Public Use
  Company Number: None

PATIENT
  Sex: Male
  Weight: 86.1834 kg

DRUGS (2)
  1. ABILIFY [Suspect]
     Dosage: ONE TABLET EVERY EVENING PO
     Route: 048
     Dates: start: 20031015, end: 20031017
  2. ZOLOFT [Suspect]
     Dosage: ONE TABLET EVERY EVENING PO
     Route: 048
     Dates: start: 20090210, end: 20091210

REACTIONS (5)
  - SPOUSAL ABUSE [None]
  - ADVERSE REACTION [None]
  - INSOMNIA [None]
  - RESTLESSNESS [None]
  - AGGRESSION [None]
